FAERS Safety Report 5904780-5 (Version None)
Quarter: 2008Q3

REPORT INFORMATION
  Report Type: 
  Country: None (occurrence: None)
  Receive Date: 20080909
  Receipt Date: 20080424
  Transmission Date: 20090109
  Serious: Yes (Death, Hospitalization)
  Sender: FDA-Public Use
  Company Number: 163-20785-08030841

PATIENT
  Age: 80 Year
  Sex: Female

DRUGS (1)
  1. THALOMID [Suspect]
     Indication: MALIGNANT MELANOMA
     Dosage: 100 MG, @HS X 28 DAYS, ORAL
     Route: 048
     Dates: start: 20070430, end: 20071001

REACTIONS (3)
  - CARDIAC FAILURE CONGESTIVE [None]
  - DIZZINESS [None]
  - METASTATIC MALIGNANT MELANOMA [None]
